FAERS Safety Report 8085647-6 (Version None)
Quarter: 2012Q1

REPORT INFORMATION
  Report Type: 
  Country: None (occurrence: None)
  Receive Date: 20120128
  Receipt Date: 20110405
  Transmission Date: 20120608
  Serious: No
  Sender: FDA-Public Use
  Company Number: US-ABBOTT-11P-163-0716533-00

PATIENT
  Sex: Female
  Weight: 56.75 kg

DRUGS (8)
  1. VITAMIN D [Concomitant]
     Indication: PRODUCT USED FOR UNKNOWN INDICATION
  2. LIALDA [Concomitant]
     Indication: CROHN'S DISEASE
  3. HUMIRA [Suspect]
     Indication: CROHN'S DISEASE
     Dates: start: 20101028
  4. MULTI-VITAMIN [Concomitant]
     Indication: PRODUCT USED FOR UNKNOWN INDICATION
  5. ASCORBIC ACID [Concomitant]
     Indication: PRODUCT USED FOR UNKNOWN INDICATION
  6. PROBIOTIC [Concomitant]
     Indication: PRODUCT USED FOR UNKNOWN INDICATION
  7. POTASSIUM [Concomitant]
     Indication: PRODUCT USED FOR UNKNOWN INDICATION
  8. BIRTH CONTROL [Concomitant]
     Indication: PRODUCT USED FOR UNKNOWN INDICATION

REACTIONS (2)
  - PROTEIN URINE PRESENT [None]
  - NOCTURIA [None]
